FAERS Safety Report 11288441 (Version 2)
Quarter: 2015Q3

REPORT INFORMATION
  Report Type: Spontaneous
  Country: US (occurrence: US)
  Receive Date: 20150721
  Receipt Date: 20150721
  Transmission Date: 20151125
  Serious: No
  Sender: FDA-Public Use
  Company Number: US-UNITED THERAPEUTICS-UNT-2015-005371

PATIENT
  Age: 76 Year
  Sex: Male
  Weight: 87.53 kg

DRUGS (1)
  1. TYVASO [Suspect]
     Active Substance: TREPROSTINIL
     Indication: PULMONARY ARTERIAL HYPERTENSION
     Dosage: 18-54 ?G, QID
     Dates: start: 20150504

REACTIONS (6)
  - Throat tightness [Unknown]
  - Cough [Recovering/Resolving]
  - Blood glucose increased [Unknown]
  - Dizziness [Not Recovered/Not Resolved]
  - Throat irritation [Unknown]
  - Flushing [Unknown]

NARRATIVE: CASE EVENT DATE: 201505
